FAERS Safety Report 24792584 (Version 1)
Quarter: 2024Q4

REPORT INFORMATION
  Report Type: Report from Study
  Country: US (occurrence: US)
  Receive Date: 20241231
  Receipt Date: 20241231
  Transmission Date: 20250114
  Serious: Yes (Hospitalization, Other)
  Sender: ROCHE
  Company Number: US-ROCHE-10000165648

PATIENT
  Sex: Female
  Weight: 104.33 kg

DRUGS (38)
  1. PIRFENIDONE [Suspect]
     Active Substance: PIRFENIDONE
     Indication: Interstitial lung disease
     Route: 048
  2. PIRFENIDONE [Suspect]
     Active Substance: PIRFENIDONE
     Indication: Idiopathic pulmonary fibrosis
     Route: 048
     Dates: start: 20241029
  3. ALBUTEROL SULFATE [Concomitant]
     Active Substance: ALBUTEROL SULFATE
     Dates: start: 20240309
  4. AMLODIPINE [Concomitant]
     Active Substance: AMLODIPINE BESYLATE
     Dates: start: 20230209
  5. ANORO ELLIPTA [Concomitant]
     Active Substance: UMECLIDINIUM BROMIDE\VILANTEROL TRIFENATATE
     Dates: start: 20221229
  6. BUMETANIDE [Concomitant]
     Active Substance: BUMETANIDE
     Dates: start: 20240207
  7. CEFDINIR [Concomitant]
     Active Substance: CEFDINIR
     Dates: start: 20231101
  8. CLINDAMYCIN HYDROCHLORIDE [Concomitant]
     Active Substance: CLINDAMYCIN HYDROCHLORIDE
     Dates: start: 20240503
  9. CLINDAMYCIN HYDROCHLORIDE [Concomitant]
     Active Substance: CLINDAMYCIN HYDROCHLORIDE
     Dates: start: 20240606
  10. CLONIDINE [Concomitant]
     Active Substance: CLONIDINE
     Dates: start: 20240229
  11. DILTIAZEM [Concomitant]
     Active Substance: DILTIAZEM
  12. DOXYCYCLINE HYCLATE [Concomitant]
     Active Substance: DOXYCYCLINE HYCLATE
     Dosage: TAKE 1 CAPSULE TWICE A DAY BY ORAL ROUTE FOR 10 DAYS.
     Route: 048
     Dates: start: 20240719
  13. ELIQUIS [Concomitant]
     Active Substance: APIXABAN
     Dates: start: 20240528
  14. FUROSEMIDE [Concomitant]
     Active Substance: FUROSEMIDE
     Dates: start: 20240528
  15. FUROSEMIDE [Concomitant]
     Active Substance: FUROSEMIDE
     Dates: start: 20231101
  16. HYDRALAZINE [Concomitant]
     Active Substance: HYDRALAZINE HYDROCHLORIDE
     Dates: start: 20230824
  17. HYDROXYCHLOROQUINE [Concomitant]
     Active Substance: HYDROXYCHLOROQUINE
     Dates: start: 20240528
  18. IMIPRAMINE [Concomitant]
     Active Substance: IMIPRAMINE
     Dates: start: 20230403
  19. IPRATROPIUM BROMIDE [Concomitant]
     Active Substance: IPRATROPIUM BROMIDE
     Dosage: 42 MCG NASAL SPRAY
     Dates: start: 20240416
  20. JARDIANCE [Concomitant]
     Active Substance: EMPAGLIFLOZIN
     Dates: start: 20240603
  21. LEFLUNOMIDE [Concomitant]
     Active Substance: LEFLUNOMIDE
     Dates: start: 20230509
  22. LISINOPRIL [Concomitant]
     Active Substance: LISINOPRIL
     Dates: start: 20240528
  23. METFORMIN [Concomitant]
     Active Substance: METFORMIN HYDROCHLORIDE
     Dates: start: 20230824
  24. METHYLPREDNISOLONE [Concomitant]
     Active Substance: METHYLPREDNISOLONE
     Dates: start: 20230618
  25. METOLAZONE [Concomitant]
     Active Substance: METOLAZONE
     Dates: start: 20240510
  26. METOPROLOL SUCCINATE [Concomitant]
     Active Substance: METOPROLOL SUCCINATE
     Dosage: ER 50 MG TABLET EXTENDED RELEASE 24 HOUR
     Dates: start: 20240507
  27. METOPROLOL SUCCINATE [Concomitant]
     Active Substance: METOPROLOL SUCCINATE
     Dosage: ER 100 MG TABLET EXTENDED RELEASE 24 HOUR
     Dates: start: 20230721
  28. MONTELUKAST [Concomitant]
     Active Substance: MONTELUKAST SODIUM
     Dates: start: 20230117
  29. MYRBETRIQ [Concomitant]
     Active Substance: MIRABEGRON
     Dates: start: 20240614
  30. NYSTATIN [Concomitant]
     Active Substance: NYSTATIN
     Dosage: 100,00 UNIT/G TOPICAL CREAM
     Dates: start: 20240408
  31. POTASSIUM CHLORIDE [Concomitant]
     Active Substance: POTASSIUM CHLORIDE
     Dates: start: 20231102
  32. PREDNISONE [Concomitant]
     Active Substance: PREDNISONE
     Dates: start: 20231019
  33. PREDNISONE [Concomitant]
     Active Substance: PREDNISONE
     Dosage: TAKE 30 MG FOR 3 DAYS, 20 MG FOR 3 DAYS, 10 MG FOR 3 DAYS THEN STOP
     Dates: start: 20240719
  34. PREGABALIN [Concomitant]
     Active Substance: PREGABALIN
     Dates: start: 20240611
  35. XARELTO [Concomitant]
     Active Substance: RIVAROXABAN
     Route: 048
     Dates: start: 20220326
  36. COVID-19 VACCINE [Concomitant]
     Dates: start: 20220106
  37. COVID-19 VACCINE [Concomitant]
     Dates: start: 20210225
  38. COVID-19 VACCINE [Concomitant]
     Dates: start: 20210208

REACTIONS (8)
  - Chronic respiratory failure [Unknown]
  - Rheumatoid arthritis [Unknown]
  - Essential hypertension [Unknown]
  - Blood alkaline phosphatase increased [Unknown]
  - Dyspnoea [Unknown]
  - Cellulitis [Unknown]
  - Gastrointestinal disorder [Unknown]
  - Pneumonia [Unknown]
